APPROVED DRUG PRODUCT: EXEMESTANE
Active Ingredient: EXEMESTANE
Strength: 25MG
Dosage Form/Route: TABLET;ORAL
Application: A211031 | Product #001 | TE Code: AB
Applicant: BRECKENRIDGE PHARMACEUTICAL INC
Approved: Feb 21, 2019 | RLD: No | RS: No | Type: RX